FAERS Safety Report 23425937 (Version 1)
Quarter: 2024Q1

REPORT INFORMATION
  Report Type: Report from Study
  Country: US (occurrence: US)
  Receive Date: 20240122
  Receipt Date: 20240122
  Transmission Date: 20240410
  Serious: Yes (Hospitalization)
  Sender: FDA-Public Use
  Company Number: US-Accord-379838

PATIENT
  Age: 53 Year
  Sex: Male

DRUGS (1)
  1. CLOZAPINE [Suspect]
     Active Substance: CLOZAPINE
     Indication: Product used for unknown indication
     Dosage: 600 DAILY AT BEDTIME.
     Route: 048

REACTIONS (4)
  - Confusional state [Unknown]
  - Atrial fibrillation [Unknown]
  - Hypotension [Unknown]
  - Intestinal obstruction [Unknown]
